FAERS Safety Report 4641562-9 (Version None)
Quarter: 2005Q2

REPORT INFORMATION
  Report Type: 
  Country: None (occurrence: None)
  Receive Date: 20050420
  Receipt Date: 20050401
  Transmission Date: 20051028
  Serious: Yes (Hospitalization)
  Sender: FDA-Public Use
  Company Number: USA050291466

PATIENT
  Age: 32 Year
  Sex: Male

DRUGS (4)
  1. CYMBALTA [Suspect]
     Indication: DEPRESSION
     Dosage: 60 MG
  2. ALLEGRA [Concomitant]
  3. PROTONIX [Concomitant]
  4. ZANTAC [Concomitant]

REACTIONS (1)
  - PANCREATITIS ACUTE [None]
